FAERS Safety Report 5893315-1 (Version None)
Quarter: 2008Q3

REPORT INFORMATION
  Report Type: 
  Country: None (occurrence: None)
  Receive Date: 20080923
  Receipt Date: 20080916
  Transmission Date: 20090109
  Serious: Yes (Hospitalization)
  Sender: FDA-Public Use
  Company Number: B0537369A

PATIENT
  Age: 81 Year
  Sex: Female

DRUGS (9)
  1. DEROXAT [Suspect]
     Indication: DRUG USE FOR UNKNOWN INDICATION
     Route: 048
     Dates: end: 20080804
  2. TOPALGIC (FRANCE) [Suspect]
     Route: 048
     Dates: end: 20080804
  3. ROCEPHIN [Suspect]
     Route: 065
     Dates: start: 20080401, end: 20080804
  4. PROTELOS [Suspect]
     Route: 048
     Dates: end: 20080804
  5. LEXOMIL [Suspect]
     Route: 048
     Dates: end: 20080804
  6. CORTANCYL [Concomitant]
     Route: 065
  7. INIPOMP [Concomitant]
     Route: 065
  8. CACIT D3 [Concomitant]
     Route: 065
  9. CORTICOIDS [Concomitant]
     Route: 065
     Dates: start: 20080201

REACTIONS (8)
  - CONFUSIONAL STATE [None]
  - DISORIENTATION [None]
  - DISTURBANCE IN ATTENTION [None]
  - GRAND MAL CONVULSION [None]
  - HALLUCINATION [None]
  - METABOLIC ALKALOSIS [None]
  - PYREXIA [None]
  - SOMNOLENCE [None]
